FAERS Safety Report 6999446-7 (Version None)
Quarter: 2010Q3

REPORT INFORMATION
  Report Type: 
  Country: None (occurrence: None)
  Receive Date: 20100920
  Receipt Date: 20100915
  Transmission Date: 20110219
  Serious: Yes (Life-Threatening, Hospitalization)
  Sender: FDA-Public Use
  Company Number: GB-PERRIGO-10GB012968

PATIENT
  Age: 64 Year
  Sex: Male

DRUGS (5)
  1. NAPROXEN SODIUM 12063/0054 250 MG [Suspect]
     Indication: OSTEOARTHRITIS
     Dosage: 250 MG, UNK
     Route: 048
     Dates: end: 20100902
  2. ATENOLOL [Concomitant]
     Indication: BLOOD PRESSURE INCREASED
     Dosage: 50 MG, QD
     Route: 048
  3. METFORMIN [Concomitant]
     Indication: TYPE 1 DIABETES MELLITUS
     Dosage: 850 MG, TID
     Route: 048
  4. NOVOMIX [Concomitant]
     Indication: TYPE 1 DIABETES MELLITUS
     Dosage: 42 IU, BID
     Route: 058
  5. SIMVASTATIN [Concomitant]
     Indication: HYPERCHOLESTEROLAEMIA
     Dosage: 40 MG, QD
     Route: 048

REACTIONS (3)
  - GASTRIC ULCER [None]
  - HAEMATEMESIS [None]
  - HAEMOGLOBIN DECREASED [None]
